FAERS Safety Report 4395064-8 (Version None)
Quarter: 2004Q3

REPORT INFORMATION
  Report Type: 
  Country: None (occurrence: None)
  Receive Date: 20040707
  Receipt Date: 20040626
  Transmission Date: 20050211
  Serious: Yes (Other)
  Sender: FDA-Public Use
  Company Number: 2004038283

PATIENT
  Age: 75 Year
  Sex: Male
  Weight: 77.1115 kg

DRUGS (4)
  1. NEURONTIN [Suspect]
     Indication: TREMOR
     Dosage: 300 MG (100 MG, 3 IN 1 D), ORAL
     Route: 048
     Dates: start: 20000319, end: 20000301
  2. HYOSCYAMINE SULFATE AND PHENOBARBITAL [Concomitant]
  3. LIBRAX [Concomitant]
  4. PRIMIDONE [Concomitant]

REACTIONS (3)
  - ARRHYTHMIA [None]
  - DRUG INEFFECTIVE [None]
  - FEELING ABNORMAL [None]
